FAERS Safety Report 11556422 (Version 3)
Quarter: 2015Q4

REPORT INFORMATION
  Report Type: Spontaneous
  Country: US (occurrence: US)
  Receive Date: 20150925
  Receipt Date: 20151218
  Transmission Date: 20160304
  Serious: No
  Sender: FDA-Public Use
  Company Number: US-GLAXOSMITHKLINE-US2015GSK135481

PATIENT
  Sex: Male

DRUGS (1)
  1. TANZEUM [Suspect]
     Active Substance: ALBIGLUTIDE
     Indication: ACCIDENTAL EXPOSURE TO PRODUCT
     Dosage: UNK

REACTIONS (4)
  - Exposure via direct contact [Unknown]
  - Product quality issue [Unknown]
  - Device leakage [Unknown]
  - Device use error [Unknown]
